FAERS Safety Report 10884969 (Version 1)
Quarter: 2015Q1

REPORT INFORMATION
  Report Type: Spontaneous
  Country: US (occurrence: None)
  Receive Date: 20150227
  Receipt Date: 20150227
  Transmission Date: 20150721
  Serious: Yes (Hospitalization)
  Sender: FDA-Public Use
  Company Number: None

PATIENT
  Age: 80 Year
  Sex: Male
  Weight: 68.5 kg

DRUGS (2)
  1. PSEUDOEPHEDRINE [Suspect]
     Active Substance: PSEUDOEPHEDRINE
     Route: 048
     Dates: start: 20141201, end: 20141202
  2. PSEUDOEPHEDRINE [Suspect]
     Active Substance: PSEUDOEPHEDRINE
     Indication: SINUS HEADACHE
     Route: 048
     Dates: start: 20141201, end: 20141202

REACTIONS (3)
  - Agitation [None]
  - Hallucination [None]
  - Mental status changes [None]

NARRATIVE: CASE EVENT DATE: 20141203
